FAERS Safety Report 10097469 (Version 1)
Quarter: 2014Q2

REPORT INFORMATION
  Report Type: Report from Study
  Country: CA (occurrence: CA)
  Receive Date: 20140423
  Receipt Date: 20140423
  Transmission Date: 20141212
  Serious: Yes (Other)
  Sender: FDA-Public Use
  Company Number: CA-ROCHE-1387778

PATIENT
  Sex: Male

DRUGS (4)
  1. PEGASYS [Suspect]
     Indication: CHRONIC HEPATITIS C
     Route: 058
     Dates: start: 20140121
  2. COPEGUS [Suspect]
     Indication: CHRONIC HEPATITIS C
     Route: 048
     Dates: start: 20140121
  3. EPREX [Concomitant]
     Dosage: DURATION: 12 WEEKS
     Route: 058
     Dates: start: 20140327
  4. ADVIL [Concomitant]
     Dosage: FREQUENCY: AS REQUIRED.
     Route: 048

REACTIONS (1)
  - Malaise [Unknown]
